FAERS Safety Report 24647311 (Version 1)
Quarter: 2024Q4

REPORT INFORMATION
  Report Type: Spontaneous
  Country: AU (occurrence: AU)
  Receive Date: 20241121
  Receipt Date: 20241121
  Transmission Date: 20250115
  Serious: Yes (Other)
  Sender: MYLAN
  Company Number: AU-MYLANLABS-2024M1103660

PATIENT

DRUGS (1)
  1. LYRICA [Suspect]
     Active Substance: PREGABALIN
     Indication: Lung operation
     Dosage: UNK
     Route: 065
     Dates: start: 2012

REACTIONS (2)
  - Suicidal ideation [Unknown]
  - Off label use [Unknown]
